FAERS Safety Report 25964726 (Version 2)
Quarter: 2025Q4

REPORT INFORMATION
  Report Type: Spontaneous
  Country: US (occurrence: US)
  Receive Date: 20251027
  Receipt Date: 20251120
  Transmission Date: 20260118
  Serious: No
  Sender: APELLIS PHARMACEUTICALS
  Company Number: US-APELLIS-2025-APL-0002025

PATIENT

DRUGS (2)
  1. EMPAVELI [Suspect]
     Active Substance: PEGCETACOPLAN
     Indication: C3 glomerulopathy
     Dosage: 1080 MG TWICE WEEKLY
     Route: 058
     Dates: start: 20250810, end: 20251013
  2. EMPAVELI [Suspect]
     Active Substance: PEGCETACOPLAN
     Route: 058
     Dates: start: 20251027

REACTIONS (1)
  - Intentional dose omission [Recovered/Resolved]
